FAERS Safety Report 4505750-4 (Version None)
Quarter: 2004Q4

REPORT INFORMATION
  Report Type: 
  Country: None (occurrence: None)
  Receive Date: 20041119
  Receipt Date: 20031002
  Transmission Date: 20050328
  Serious: Yes (Death, Hospitalization)
  Sender: FDA-Public Use
  Company Number: GB-GLAXOSMITHKLINE-B0310701A

PATIENT
  Age: 18 Year
  Sex: Male

DRUGS (2)
  1. SEROXAT [Suspect]
     Indication: DEPRESSION
     Route: 048
     Dates: start: 20030121
  2. ACETAMINOPHEN [Concomitant]
     Route: 065

REACTIONS (7)
  - AGITATION [None]
  - ANXIETY [None]
  - COMPLETED SUICIDE [None]
  - DYSKINESIA [None]
  - EMOTIONAL DISTRESS [None]
  - INTENTIONAL SELF-INJURY [None]
  - NIGHTMARE [None]
